FAERS Safety Report 4489375-5 (Version None)
Quarter: 2004Q4

REPORT INFORMATION
  Report Type: 
  Country: None (occurrence: None)
  Receive Date: 20041101
  Receipt Date: 20041019
  Transmission Date: 20050328
  Serious: Yes (Other)
  Sender: FDA-Public Use
  Company Number: DE-BRISTOL-MYERS SQUIBB COMPANY-12742706

PATIENT
  Sex: Male

DRUGS (1)
  1. DAIVONEX [Suspect]
     Indication: PSORIASIS
     Dosage: DURATION: ^YEARS^
     Route: 061

REACTIONS (1)
  - CALCULUS URETERIC [None]
